FAERS Safety Report 14831675 (Version 1)
Quarter: 2018Q2

REPORT INFORMATION
  Report Type: Spontaneous
  Country: US (occurrence: US)
  Receive Date: 20180410
  Receipt Date: 20180410
  Transmission Date: 20180711
  Serious: No
  Sender: FDA-Public Use
  Company Number: None

PATIENT
  Age: 60 Year
  Sex: Male
  Weight: 85 kg

DRUGS (1)
  1. DAPTOMYCIN. [Suspect]
     Active Substance: DAPTOMYCIN
     Indication: STAPHYLOCOCCAL INFECTION
     Route: 040
     Dates: start: 20180310, end: 20180310

REACTIONS (5)
  - Rash [None]
  - Chills [None]
  - Dyspnoea [None]
  - Paraesthesia [None]
  - Hypertension [None]

NARRATIVE: CASE EVENT DATE: 20180310
